FAERS Safety Report 13637579 (Version 2)
Quarter: 2017Q2

REPORT INFORMATION
  Report Type: Spontaneous
  Country: US (occurrence: US)
  Receive Date: 20170609
  Receipt Date: 20170621
  Transmission Date: 20170830
  Serious: Yes (Other)
  Sender: FDA-Public Use
  Company Number: US-PFIZER INC-2017246474

PATIENT
  Age: 9 Year
  Sex: Male
  Weight: 53 kg

DRUGS (1)
  1. TESTOSTERONE CIPIONATE [Suspect]
     Active Substance: TESTOSTERONE
     Dosage: 25 MG, UNK, (RECEIVED 3 MONTHS )
     Route: 030
     Dates: start: 201301, end: 201304

REACTIONS (4)
  - Drug administered to patient of inappropriate age [Unknown]
  - Drug effect incomplete [Unknown]
  - Epiphyses premature fusion [Unknown]
  - Endocrine disorder [Unknown]

NARRATIVE: CASE EVENT DATE: 201301
